FAERS Safety Report 5594957-3 (Version None)
Quarter: 2007Q4

REPORT INFORMATION
  Report Type: 
  Country: None (occurrence: None)
  Receive Date: 20071218
  Receipt Date: 20070126
  Transmission Date: 20080405
  Serious: Yes (Life-Threatening, Hospitalization, Other)
  Sender: FDA-Public Use
  Company Number: 2006095708

PATIENT
  Age: 47 Year
  Sex: Male
  Weight: 104.3 kg

DRUGS (1)
  1. BEXTRA [Suspect]
     Indication: PAIN IN EXTREMITY
     Dosage: 20 MG (10 MG, 2 IN 1 D)
     Dates: start: 20031101

REACTIONS (2)
  - PULMONARY EMBOLISM [None]
  - SLEEP APNOEA SYNDROME [None]
